FAERS Safety Report 7360202-1 (Version None)
Quarter: 2011Q1

REPORT INFORMATION
  Report Type: 
  Country: None (occurrence: None)
  Receive Date: 20110307
  Receipt Date: 20110218
  Transmission Date: 20110831
  Serious: Yes (Other)
  Sender: FDA-Public Use
  Company Number: 2011000889

PATIENT
  Sex: Female

DRUGS (2)
  1. TARCEVA [Suspect]
     Indication: NON-SMALL CELL LUNG CANCER METASTATIC
     Dosage: 100 MG, 1 X PER 1 DAY, ORAL
     Route: 048
     Dates: start: 20100815, end: 20101215
  2. ZOMETA [Concomitant]

REACTIONS (6)
  - PULMONARY OEDEMA [None]
  - TACHYCARDIA [None]
  - SPINAL FRACTURE [None]
  - NEOPLASM MALIGNANT [None]
  - METASTASES TO BONE [None]
  - CONDITION AGGRAVATED [None]
